FAERS Safety Report 17158933 (Version 1)
Quarter: 2019Q4

REPORT INFORMATION
  Report Type: Spontaneous
  Country: US (occurrence: US)
  Receive Date: 20191214
  Receipt Date: 20191214
  Transmission Date: 20200122
  Serious: Yes (Life-Threatening, Hospitalization)
  Sender: FDA-Public Use
  Company Number: None

PATIENT
  Age: 73 Year
  Sex: Female
  Weight: 87 kg

DRUGS (1)
  1. NEOMYCIN. [Suspect]
     Active Substance: NEOMYCIN

REACTIONS (4)
  - Drug reaction with eosinophilia and systemic symptoms [None]
  - Abdominal adhesions [None]
  - Tachycardia [None]
  - Post procedural complication [None]

NARRATIVE: CASE EVENT DATE: 20191129
